FAERS Safety Report 4364484-X (Version None)
Quarter: 2004Q2

REPORT INFORMATION
  Report Type: 
  Country: None (occurrence: None)
  Receive Date: 20040519
  Receipt Date: 20040514
  Transmission Date: 20050107
  Serious: Yes (Hospitalization)
  Sender: FDA-Public Use
  Company Number: TAP2004Q00473

PATIENT
  Age: 72 Year
  Sex: Male
  Weight: 72.5755 kg

DRUGS (1)
  1. LUPRON DEPOT-4 [Suspect]
     Indication: PROSTATE CANCER
     Dosage: 30 MG, 1 IN 4 M, INTRAMUSCULAR
     Route: 030
     Dates: start: 20040131

REACTIONS (6)
  - BODY TEMPERATURE INCREASED [None]
  - FATIGUE [None]
  - HEADACHE [None]
  - NIGHT SWEATS [None]
  - PANCYTOPENIA [None]
  - SINUSITIS [None]
